FAERS Safety Report 4863562-6 (Version None)
Quarter: 2005Q4

REPORT INFORMATION
  Report Type: 
  Country: None (occurrence: None)
  Receive Date: 20051222
  Receipt Date: 20050426
  Transmission Date: 20060501
  Serious: No
  Sender: FDA-Public Use
  Company Number: US-GLAXOSMITHKLINE-A0555839A

PATIENT
  Age: 22 Year
  Sex: Male
  Weight: 88.2 kg

DRUGS (1)
  1. FLONASE [Suspect]
     Dosage: 2SPR SINGLE DOSE
     Route: 045

REACTIONS (3)
  - EYE PRURITUS [None]
  - EYE SWELLING [None]
  - NASAL CONGESTION [None]
